FAERS Safety Report 9380912 (Version 2)
Quarter: 2013Q3

REPORT INFORMATION
  Report Type: Spontaneous
  Country: CA (occurrence: CA)
  Receive Date: 20130703
  Receipt Date: 20130704
  Transmission Date: 20140515
  Serious: Yes (Death, Other)
  Sender: FDA-Public Use
  Company Number: CA-JNJFOC-20130619119

PATIENT
  Age: 87 Year
  Sex: Male

DRUGS (1)
  1. NICORETTE GUM 2MG FRESHMINT [Suspect]
     Indication: EX-TOBACCO USER
     Route: 048

REACTIONS (3)
  - Lung neoplasm malignant [Fatal]
  - Nicotine dependence [Unknown]
  - Incorrect drug administration duration [Unknown]
